FAERS Safety Report 19069948 (Version 1)
Quarter: 2021Q1

REPORT INFORMATION
  Report Type: Spontaneous
  Country: US (occurrence: US)
  Receive Date: 20210329
  Receipt Date: 20210329
  Transmission Date: 20210420
  Serious: No
  Sender: FDA-Public Use
  Company Number: US-PFIZER INC-2021243651

PATIENT
  Age: 60 Year
  Sex: Female
  Weight: 77.11 kg

DRUGS (2)
  1. SULFASALAZINE. [Suspect]
     Active Substance: SULFASALAZINE
     Indication: RHEUMATOID ARTHRITIS
     Dosage: 500 MG, 2X/DAY,(TAKE ONE TWICE DAILY INITIALLY, THEN INCREASED TO TWO TWICE DAILY)
     Route: 048
     Dates: start: 20210127, end: 20210227
  2. SULFASALAZINE. [Suspect]
     Active Substance: SULFASALAZINE
     Dosage: 1000 MG, 2X/DAY (500MG; TAKE ONE TWICE DAILY INITIALLY, THEN INCREASED TO TWO TWICE DAILY BY MOUTH)
     Route: 048

REACTIONS (3)
  - Condition aggravated [Unknown]
  - Muscle spasms [Recovering/Resolving]
  - Diarrhoea [Recovering/Resolving]
